FAERS Safety Report 4290276-6 (Version None)
Quarter: 2004Q1

REPORT INFORMATION
  Report Type: 
  Country: None (occurrence: None)
  Receive Date: 20040206
  Receipt Date: 20040206
  Transmission Date: 20041129
  Serious: Yes (Disabling)
  Sender: FDA-Public Use
  Company Number: None

PATIENT
  Age: 43 Year
  Sex: Female
  Weight: 55.7924 kg

DRUGS (2)
  1. RIBAVIRIN [Suspect]
     Indication: HEPATITIS C
     Dosage: 200 MG 3 X DAILY ORAL
     Route: 048
     Dates: start: 19990825, end: 20000110
  2. INTRON A [Suspect]
     Indication: HEPATITIS C
     Dosage: INTRON-A 3 X WEEKLY SUBCUTANEOUS
     Route: 058
     Dates: start: 19990825, end: 20000110

REACTIONS (7)
  - ALOPECIA [None]
  - ARTHRITIS [None]
  - DECREASED ACTIVITY [None]
  - DEPRESSION [None]
  - MEMORY IMPAIRMENT [None]
  - PAIN [None]
  - VOMITING [None]
